FAERS Safety Report 11291056 (Version 1)
Quarter: 2015Q3

REPORT INFORMATION
  Report Type: Spontaneous
  Country: US (occurrence: US)
  Receive Date: 20150722
  Receipt Date: 20150722
  Transmission Date: 20151125
  Serious: Yes (Death, Hospitalization, Other)
  Sender: FDA-Public Use
  Company Number: US-AMGEN-USASP2015071472

PATIENT
  Age: 84 Year
  Sex: Male

DRUGS (1)
  1. NPLATE [Suspect]
     Active Substance: ROMIPLOSTIM
     Indication: PRODUCT USED FOR UNKNOWN INDICATION
     Dosage: UNK
     Route: 065

REACTIONS (11)
  - Loss of consciousness [Unknown]
  - Blood urine present [Unknown]
  - Myelodysplastic syndrome [Fatal]
  - Platelet count decreased [Unknown]
  - Pulse abnormal [Unknown]
  - Epistaxis [Unknown]
  - Pyrexia [Unknown]
  - Haematochezia [Unknown]
  - Incoherent [Unknown]
  - Haemoglobin decreased [Unknown]
  - Rehabilitation therapy [Recovered/Resolved]

NARRATIVE: CASE EVENT DATE: 201109
